FAERS Safety Report 20150375 (Version 1)
Quarter: 2021Q4

REPORT INFORMATION
  Report Type: Spontaneous
  Country: US (occurrence: US)
  Receive Date: 20211206
  Receipt Date: 20211206
  Transmission Date: 20220303
  Serious: Yes (Life-Threatening, Hospitalization)
  Sender: FDA-Public Use
  Company Number: US-JNJFOC-20211153965

PATIENT
  Age: 56 Year
  Sex: Female
  Weight: 87 kg

DRUGS (13)
  1. TYLENOL EXTRA STRENGTH [Suspect]
     Active Substance: ACETAMINOPHEN
     Indication: Back pain
     Dosage: ACETAMINOPHEN 500 MG AT A TOTAL DAILY DOSE OF ACETAMINOPHEN 4000 MG FOR 2 DAYS (TOTAL DOSE: 9200 MG)
     Route: 048
     Dates: start: 2003, end: 20031107
  2. TYLENOL WITH CODEINE [Suspect]
     Active Substance: ACETAMINOPHEN\CODEINE PHOSPHATE
     Indication: Back pain
     Dosage: ACETAMINOPHEN 300 MG/ CODEINE PHOSPHATE 30 MG AT A TOTAL DAILY DOSE OF ACETAMINOPHEN 600 MG//CODEINE
     Route: 048
     Dates: start: 200311, end: 20031107
  3. AUGMENTIN [Concomitant]
     Active Substance: AMOXICILLIN\CLAVULANATE POTASSIUM
     Indication: Product used for unknown indication
     Dosage: TOTAL DAILY DOSE OF 1600 MG FOR 2 DAYS
     Route: 065
     Dates: end: 20031107
  4. PRILOSEC [Concomitant]
     Active Substance: OMEPRAZOLE MAGNESIUM
     Indication: Product used for unknown indication
     Dosage: TOTAL DAILY DOSE OF 20 MG FOR 20 MONTHS
     Route: 065
     Dates: end: 20031107
  5. SINGULAIR [Concomitant]
     Active Substance: MONTELUKAST SODIUM
     Indication: Product used for unknown indication
     Dosage: TOTAL DAILY DOSE OF 10 MG FOR 24 MONTHS
     Route: 065
     Dates: end: 20031107
  6. LASIX [Concomitant]
     Active Substance: FUROSEMIDE
     Indication: Product used for unknown indication
     Dosage: TOTAL DAILY DOSE OF 20 MG FOR 14 DAYS
     Route: 065
     Dates: end: 20031107
  7. ZOLOFT [Concomitant]
     Active Substance: SERTRALINE HYDROCHLORIDE
     Indication: Product used for unknown indication
     Dosage: TOTAL DAILY DOSE OF 50 MG FOR 2 MONTHS
     Route: 065
     Dates: end: 200311
  8. ESTRATEST [Concomitant]
     Active Substance: ESTROGENS, ESTERIFIED\METHYLTESTOSTERONE
     Indication: Product used for unknown indication
     Dosage: FOR 7 DAYS
     Route: 065
     Dates: end: 200306
  9. NAPROSYN [Concomitant]
     Active Substance: NAPROXEN
     Indication: Product used for unknown indication
     Dosage: TOTAL DAILY DOSE OF 500 MG FOR 7 DAYS
     Route: 065
     Dates: end: 20030811
  10. FLUOXETINE [Concomitant]
     Active Substance: FLUOXETINE HYDROCHLORIDE
     Indication: Product used for unknown indication
     Dosage: TOTAL DAILY DOSE OF 20 MG
     Route: 065
     Dates: end: 20031115
  11. LOPRESSOR [Concomitant]
     Active Substance: METOPROLOL TARTRATE
     Indication: Product used for unknown indication
     Dosage: TOTAL DAILY DOSE OF 50 MG FOR 7 DAYS
     Route: 065
     Dates: end: 20031018
  12. ANTABUSE [Concomitant]
     Active Substance: DISULFIRAM
     Indication: Product used for unknown indication
     Dosage: FOR 2 MONTHS
     Route: 065
     Dates: end: 200308
  13. PROMETHAZINE [Concomitant]
     Active Substance: PROMETHAZINE HYDROCHLORIDE
     Indication: Product used for unknown indication
     Dosage: TOTAL DAILY DOSE OF 25 MG FOR 2 DAYS
     Route: 065
     Dates: end: 20031107

REACTIONS (13)
  - Acute hepatic failure [Not Recovered/Not Resolved]
  - Acute kidney injury [Not Recovered/Not Resolved]
  - Multiple organ dysfunction syndrome [Not Recovered/Not Resolved]
  - Cardio-respiratory arrest [Not Recovered/Not Resolved]
  - Arrhythmia [Not Recovered/Not Resolved]
  - Seizure [Not Recovered/Not Resolved]
  - Pancreatitis acute [Not Recovered/Not Resolved]
  - Pleural effusion [Not Recovered/Not Resolved]
  - Enterococcal infection [Not Recovered/Not Resolved]
  - Candida infection [Not Recovered/Not Resolved]
  - Fungal infection [Not Recovered/Not Resolved]
  - Product administration error [Not Recovered/Not Resolved]
  - Accidental overdose [Not Recovered/Not Resolved]

NARRATIVE: CASE EVENT DATE: 20030109
